FAERS Safety Report 10711219 (Version 2)
Quarter: 2015Q1

REPORT INFORMATION
  Report Type: Spontaneous
  Country: TR (occurrence: TR)
  Receive Date: 20150114
  Receipt Date: 20150212
  Transmission Date: 20150721
  Serious: Yes (Hospitalization)
  Sender: FDA-Public Use
  Company Number: TR-JNJFOC-20150108340

PATIENT
  Age: 42 Year
  Sex: Female
  Weight: 77 kg

DRUGS (1)
  1. SIMPONI [Suspect]
     Active Substance: GOLIMUMAB
     Indication: ANKYLOSING SPONDYLITIS
     Route: 058
     Dates: start: 20130412

REACTIONS (3)
  - Fall [Recovering/Resolving]
  - Upper limb fracture [Recovering/Resolving]
  - Melanocytic naevus [Recovering/Resolving]

NARRATIVE: CASE EVENT DATE: 20150128
